FAERS Safety Report 10759942 (Version 2)
Quarter: 2015Q1

REPORT INFORMATION
  Report Type: Spontaneous
  Country: BE (occurrence: BE)
  Receive Date: 20150203
  Receipt Date: 20150224
  Transmission Date: 20150721
  Serious: Yes (Other)
  Sender: FDA-Public Use
  Company Number: BE-AMGEN-BELSP2015008945

PATIENT
  Age: 48 Year
  Sex: Male
  Weight: 70 kg

DRUGS (2)
  1. FELDENE [Concomitant]
     Active Substance: PIROXICAM
     Dosage: 20 MG, AS NEEDED
  2. ENBREL [Suspect]
     Active Substance: ETANERCEPT
     Indication: SPONDYLOARTHROPATHY
     Dosage: 25 MG, 3-4X/MONTH
     Route: 058
     Dates: start: 20051101, end: 201412

REACTIONS (5)
  - Tongue spasm [Unknown]
  - Condition aggravated [Not Recovered/Not Resolved]
  - Throat irritation [Unknown]
  - Spondyloarthropathy [Not Recovered/Not Resolved]
  - Adenoid cystic carcinoma [Unknown]

NARRATIVE: CASE EVENT DATE: 201501
